FAERS Safety Report 21540999 (Version 2)
Quarter: 2022Q4

REPORT INFORMATION
  Report Type: Spontaneous
  Country: CZ (occurrence: CZ)
  Receive Date: 20221102
  Receipt Date: 20221225
  Transmission Date: 20230113
  Serious: Yes (Hospitalization, Other)
  Sender: FDA-Public Use
  Company Number: CZ-TEVA-2022-CZ-2082433

PATIENT
  Sex: Female
  Weight: 65 kg

DRUGS (6)
  1. ACETAMINOPHEN\TRAMADOL [Suspect]
     Active Substance: ACETAMINOPHEN\TRAMADOL
     Indication: Spinal pain
     Dosage: 3 DOSAGE FORM, 1/DAY
     Route: 048
  2. FUROSEMIDE [Suspect]
     Active Substance: FUROSEMIDE
     Indication: Peripheral swelling
     Dosage: 40 MILLIGRAM, 1/DAY
     Route: 048
  3. METFORMIN [Suspect]
     Active Substance: METFORMIN HYDROCHLORIDE
     Indication: Type 2 diabetes mellitus
     Dosage: 1000 MILLIGRAM, 1/DAY
     Route: 048
  4. FOSINOPRIL [Concomitant]
     Active Substance: FOSINOPRIL
     Indication: Hypertension
     Dosage: 40 MILLIGRAM, 1/DAY
     Route: 065
  5. FOSINOPRIL [Concomitant]
     Active Substance: FOSINOPRIL
     Dosage: 20 MILLIGRAM, 1/DAY
     Route: 042
  6. SILYMARINE [Concomitant]
     Indication: Liver disorder
     Dosage: 50 MILLIGRAM, 1/DAY
     Route: 065

REACTIONS (13)
  - Nephropathy [Unknown]
  - Treatment noncompliance [Recovered/Resolved]
  - Peripheral swelling [Recovering/Resolving]
  - Liver disorder [Unknown]
  - COVID-19 [Unknown]
  - Pulmonary hypertension [Unknown]
  - Thrombosis [Not Recovered/Not Resolved]
  - Cardiomegaly [Unknown]
  - Dyspnoea [Recovered/Resolved]
  - Ventricular tachycardia [Unknown]
  - Ascites [Unknown]
  - Microcytic anaemia [Unknown]
  - Atrial fibrillation [Unknown]
